FAERS Safety Report 12771002 (Version 1)
Quarter: 2016Q3

REPORT INFORMATION
  Report Type: Spontaneous
  Country: US (occurrence: US)
  Receive Date: 20160922
  Receipt Date: 20160922
  Transmission Date: 20161109
  Serious: No
  Sender: FDA-Public Use
  Company Number: US-TEVA-693355USA

PATIENT
  Age: 62 Year
  Sex: Female

DRUGS (19)
  1. COPAXONE [Suspect]
     Active Substance: GLATIRAMER ACETATE
     Indication: MULTIPLE SCLEROSIS
     Dosage: 17.1429 MILLIGRAM DAILY;
     Route: 058
     Dates: start: 201204
  2. VESICARE [Concomitant]
     Active Substance: SOLIFENACIN SUCCINATE
  3. CLONIDINE. [Concomitant]
     Active Substance: CLONIDINE
  4. NEXIUM [Concomitant]
     Active Substance: ESOMEPRAZOLE MAGNESIUM
  5. DULOXETINE. [Concomitant]
     Active Substance: DULOXETINE
  6. MONTELUKAST [Concomitant]
     Active Substance: MONTELUKAST SODIUM
  7. AMITIZA [Concomitant]
     Active Substance: LUBIPROSTONE
  8. NORTRIPTYLINE [Concomitant]
     Active Substance: NORTRIPTYLINE
  9. TRAZODONE [Concomitant]
     Active Substance: TRAZODONE HYDROCHLORIDE
  10. CELECOXIB. [Concomitant]
     Active Substance: CELECOXIB
  11. SMZ-TMP [Concomitant]
     Active Substance: SULFAMETHOXAZOLE\TRIMETHOPRIM
  12. ALENDRONATE [Concomitant]
     Active Substance: ALENDRONATE SODIUM
  13. LAMOTRIGINE. [Concomitant]
     Active Substance: LAMOTRIGINE
  14. AMLODIPINE [Concomitant]
     Active Substance: AMLODIPINE BESYLATE
  15. LISINOPRIL. [Concomitant]
     Active Substance: LISINOPRIL
  16. FLUTICASONE [Concomitant]
     Active Substance: FLUTICASONE\FLUTICASONE PROPIONATE
  17. GABAPENTIN. [Concomitant]
     Active Substance: GABAPENTIN
  18. NITROFUR [Concomitant]
     Active Substance: NITROFURANTOIN
  19. BACLOFEN. [Concomitant]
     Active Substance: BACLOFEN

REACTIONS (2)
  - Fatigue [Unknown]
  - Gait disturbance [Unknown]
